FAERS Safety Report 4277723-0 (Version None)
Quarter: 2004Q1

REPORT INFORMATION
  Report Type: 
  Country: None (occurrence: None)
  Receive Date: 20040123
  Receipt Date: 20040109
  Transmission Date: 20041129
  Serious: Yes (Death, Other)
  Sender: FDA-Public Use
  Company Number: PHBS2004IT00677

PATIENT
  Age: 72 Year
  Sex: Male

DRUGS (7)
  1. AREDIA [Suspect]
     Indication: METASTASES TO BONE
     Dosage: 90 MG
     Dates: start: 20031206, end: 20040103
  2. GLOBUREN [Concomitant]
     Dosage: 10000 IU
     Route: 058
  3. NEURONTIN [Concomitant]
     Dosage: 100 MG/D
     Route: 048
     Dates: start: 20030901, end: 20040103
  4. ZIBREN [Concomitant]
     Dosage: 500 MG/D
     Route: 048
     Dates: start: 20030901, end: 20040103
  5. EUTIROX [Concomitant]
     Dosage: 75 UG/D
     Route: 048
     Dates: start: 20011001, end: 20040103
  6. DURAGESIC [Concomitant]
     Route: 062
     Dates: start: 20031101, end: 20040103
  7. TRIASPORIN [Concomitant]
     Dosage: 150 MG/D
     Route: 048
     Dates: start: 20031202, end: 20040103

REACTIONS (11)
  - ATRIOVENTRICULAR BLOCK [None]
  - ATRIOVENTRICULAR BLOCK FIRST DEGREE [None]
  - ATRIOVENTRICULAR BLOCK SECOND DEGREE [None]
  - BRADYCARDIA [None]
  - CARDIAC ARREST [None]
  - ELECTROCARDIOGRAM QRS COMPLEX PROLONGED [None]
  - ELECTROMECHANICAL DISSOCIATION [None]
  - HYPOTENSION [None]
  - PETIT MAL EPILEPSY [None]
  - PULSE ABSENT [None]
  - SUDDEN DEATH [None]
